FAERS Safety Report 22283557 (Version 1)
Quarter: 2023Q2

REPORT INFORMATION
  Report Type: Spontaneous
  Country: US (occurrence: None)
  Receive Date: 20230503
  Receipt Date: 20230503
  Transmission Date: 20230722
  Serious: Yes (Death)
  Sender: FDA-Public Use
  Company Number: None

PATIENT
  Age: 52 Year
  Sex: Female
  Weight: 58.5 kg

DRUGS (6)
  1. BACLOFEN [Suspect]
     Active Substance: BACLOFEN
     Indication: Muscle relaxant therapy
     Dosage: OTHER QUANTITY : 40 TABLET(S);?FREQUENCY : EVERY 8 HOURS;?
     Route: 048
     Dates: start: 20230426, end: 20230502
  2. Oxytocin (post-op) [Concomitant]
  3. LAMOTRIGINE [Concomitant]
     Active Substance: LAMOTRIGINE
  4. DULOXETINE [Concomitant]
     Active Substance: DULOXETINE
  5. ROSUVASTATIN [Concomitant]
     Active Substance: ROSUVASTATIN
  6. FERROUS SULFATE [Concomitant]
     Active Substance: FERROUS SULFATE

REACTIONS (2)
  - Nightmare [None]
  - Hallucination [None]

NARRATIVE: CASE EVENT DATE: 20230430
